FAERS Safety Report 9225562 (Version 7)
Quarter: 2013Q3

REPORT INFORMATION
  Report Type: Report from Study
  Country: US (occurrence: US)
  Receive Date: 20130411
  Receipt Date: 20130925
  Transmission Date: 20140515
  Serious: Yes (Hospitalization)
  Sender: FDA-Public Use
  Company Number: US-FRI-1000044049

PATIENT
  Age: 44 Year
  Sex: Male
  Weight: 89.8 kg

DRUGS (4)
  1. CEFTAROLINE FOSAMIL (OPEN-LABEL) [Suspect]
     Indication: BACTERAEMIA
     Dosage: 1800 MG
     Route: 042
     Dates: start: 20130222, end: 20130228
  2. TEFLARO [Suspect]
     Indication: BACTERAEMIA
     Dosage: 1800 MG
     Route: 042
     Dates: start: 20130228, end: 20130411
  3. PRILOSEC [Concomitant]
     Dosage: 40 MG
     Route: 048
     Dates: start: 20130404
  4. PROPRANOLOL [Concomitant]
     Dosage: 40 MG
     Route: 048
     Dates: start: 20130404

REACTIONS (1)
  - Ascites [Not Recovered/Not Resolved]
